FAERS Safety Report 7726479-5 (Version None)
Quarter: 2011Q3

REPORT INFORMATION
  Report Type: 
  Country: None (occurrence: None)
  Receive Date: 20110902
  Receipt Date: 20110826
  Transmission Date: 20111222
  Serious: Yes (Other)
  Sender: FDA-Public Use
  Company Number: US-BAYER-2011-066274

PATIENT
  Age: 25 Year
  Sex: Female
  Weight: 53.515 kg

DRUGS (1)
  1. MIRENA [Suspect]
     Indication: CONTRACEPTION
     Dosage: UNK
     Route: 015
     Dates: start: 20110719, end: 20110719

REACTIONS (2)
  - DEVICE EXPULSION [None]
  - UTERINE PERFORATION [None]
